FAERS Safety Report 8056497-1 (Version None)
Quarter: 2012Q1

REPORT INFORMATION
  Report Type: 
  Country: None (occurrence: None)
  Receive Date: 20120119
  Receipt Date: 20120116
  Transmission Date: 20120608
  Serious: Yes (Hospitalization)
  Sender: FDA-Public Use
  Company Number: US-VERTEX PHARMACEUTICALS INC.-AE-2012-000890

PATIENT
  Sex: Male

DRUGS (9)
  1. PEGASYS [Concomitant]
     Indication: HEPATITIS C
     Route: 058
  2. PAROXETINE [Concomitant]
  3. RIBAVIRIN [Concomitant]
     Indication: HEPATITIS C
  4. INCIVEK [Suspect]
     Indication: HEPATITIS C
     Route: 048
  5. TOPROL-XL [Concomitant]
  6. ZINC [Concomitant]
  7. OMEPRAZOLE [Concomitant]
  8. XIFAXAN [Concomitant]
  9. KRISTALOSE [Concomitant]

REACTIONS (2)
  - AMMONIA INCREASED [None]
  - DIARRHOEA [None]
